FAERS Safety Report 4808835-8 (Version None)
Quarter: 2005Q4

REPORT INFORMATION
  Report Type: 
  Country: None (occurrence: None)
  Receive Date: 20051021
  Receipt Date: 20020813
  Transmission Date: 20060501
  Serious: No
  Sender: FDA-Public Use
  Company Number: DE_020809422

PATIENT
  Age: 39 Year
  Sex: Male

DRUGS (4)
  1. ZYPREXA [Suspect]
     Indication: SCHIZOPHRENIA
     Dosage: 20 MG/DAY
     Dates: start: 20010101
  2. GLIANIMON (BENPERIDOL) [Concomitant]
  3. VALPROATE SODIUM [Concomitant]
  4. PAROXETINE HCL [Concomitant]

REACTIONS (2)
  - LEUKOPENIA [None]
  - NEUTROPENIA [None]
